FAERS Safety Report 6521853-7 (Version None)
Quarter: 2009Q4

REPORT INFORMATION
  Report Type: 
  Country: None (occurrence: None)
  Receive Date: 20091230
  Receipt Date: 20091221
  Transmission Date: 20100525
  Serious: Yes (Hospitalization)
  Sender: FDA-Public Use
  Company Number: US-ALEXION-A200901070

PATIENT
  Sex: Male

DRUGS (11)
  1. SOLIRIS [Suspect]
     Indication: PAROXYSMAL NOCTURNAL HAEMOGLOBINURIA
     Dosage: 600 MG, UNK
     Route: 042
     Dates: start: 20091204, end: 20091204
  2. SOLIRIS [Suspect]
     Dosage: 600 MG, UNK
     Route: 042
     Dates: start: 20091213, end: 20091213
  3. SOLIRIS [Suspect]
     Dosage: 600 MG, (3RD OF 4 INDUCTION INFUSIONS)
     Route: 042
     Dates: start: 20091218
  4. CYANOCOBALAMIN [Concomitant]
     Dosage: 1000 UG, QD
     Route: 048
  5. FERROUS SULFATE TAB [Concomitant]
     Dosage: 325 MG, TID
     Route: 048
  6. FUROSEMIDE [Concomitant]
     Dosage: 0.5 MG, QD
     Route: 048
  7. FOLIC ACID [Concomitant]
     Dosage: 5 MG, QD
     Route: 048
  8. LISINOPRIL [Concomitant]
     Dosage: 10 MG, QD
     Route: 048
  9. OXYCODONE [Concomitant]
     Dosage: 2 TABS, Q6H, PRN
     Route: 048
  10. MAGNESIUM OXIDE [Concomitant]
     Dosage: 400 MG, QD
     Route: 048
  11. SPIRONOLACTONE [Concomitant]
     Dosage: 25 MG, QD
     Route: 048

REACTIONS (3)
  - HAEMOLYSIS [None]
  - PYREXIA [None]
  - VIRAL INFECTION [None]
